FAERS Safety Report 25107516 (Version 1)
Quarter: 2025Q1

REPORT INFORMATION
  Report Type: Spontaneous
  Country: US (occurrence: US)
  Receive Date: 20250321
  Receipt Date: 20250321
  Transmission Date: 20250409
  Serious: Yes (Death, Life-Threatening, Hospitalization, Disabling)
  Sender: MERCK SHARP & DOHME LLC
  Company Number: US-009507513-2263368

PATIENT
  Age: 76 Year
  Sex: Male

DRUGS (2)
  1. KEYTRUDA [Suspect]
     Active Substance: PEMBROLIZUMAB
     Indication: Renal cell carcinoma
     Dosage: INFUSION EVERY 3 WEEKS
     Route: 050
     Dates: start: 202409, end: 202412
  2. INLYTA [Concomitant]
     Active Substance: AXITINIB

REACTIONS (5)
  - Death [Fatal]
  - Chest pain [Not Recovered/Not Resolved]
  - Hypoxia [Not Recovered/Not Resolved]
  - Sepsis [Not Recovered/Not Resolved]
  - Septic shock [Not Recovered/Not Resolved]

NARRATIVE: CASE EVENT DATE: 20240101
